FAERS Safety Report 20049683 (Version 1)
Quarter: 2021Q4

REPORT INFORMATION
  Report Type: Spontaneous
  Country: US (occurrence: US)
  Receive Date: 20211109
  Receipt Date: 20211109
  Transmission Date: 20220303
  Serious: No
  Sender: FDA-Public Use
  Company Number: US-BIOMARINAP-US-2021-139342

PATIENT
  Sex: Male
  Weight: 72.608 kg

DRUGS (2)
  1. KUVAN [Suspect]
     Active Substance: SAPROPTERIN DIHYDROCHLORIDE
     Indication: Phenylketonuria
     Dosage: 1400 MILLIGRAM, QD
     Route: 048
     Dates: start: 20100110
  2. MEDICAL FOOD [Concomitant]
     Active Substance: MEDICAL FOOD
     Indication: Product used for unknown indication

REACTIONS (1)
  - Memory impairment [Unknown]
